FAERS Safety Report 15035238 (Version 3)
Quarter: 2018Q3

REPORT INFORMATION
  Report Type: Report from Study
  Country: ES (occurrence: ES)
  Receive Date: 20180620
  Receipt Date: 20180705
  Transmission Date: 20181010
  Serious: Yes (Hospitalization)
  Sender: FDA-Public Use
  Company Number: ES-ROCHE-2141979

PATIENT
  Age: 69 Year
  Sex: Female
  Weight: 55 kg

DRUGS (11)
  1. VINCRISTINE [Suspect]
     Active Substance: VINCRISTINE
     Indication: DIFFUSE LARGE B-CELL LYMPHOMA
     Route: 042
     Dates: start: 20180404, end: 20180404
  2. CYCLOPHOSPHAMIDE. [Suspect]
     Active Substance: CYCLOPHOSPHAMIDE
     Indication: DIFFUSE LARGE B-CELL LYMPHOMA
     Dosage: 750 MG/M2, DAY 1
     Route: 042
     Dates: start: 20180404, end: 20180404
  3. ALLOPURINOL. [Concomitant]
     Active Substance: ALLOPURINOL
     Indication: PROPHYLAXIS
     Route: 048
     Dates: start: 20180405
  4. CC?122 [Suspect]
     Active Substance: INVESTIGATIONAL PRODUCT
     Indication: DIFFUSE LARGE B-CELL LYMPHOMA
     Dosage: 2 MG, CYCLIC (DAYS 1?5 AND 8?12)
     Route: 048
     Dates: start: 20180404, end: 20180411
  5. SEPTRIN [Concomitant]
     Active Substance: SULFAMETHOXAZOLE\TRIMETHOPRIM
     Indication: INFECTION PROPHYLAXIS
     Dosage: UNK
     Route: 048
     Dates: start: 20180405
  6. ONDASETRON [Concomitant]
     Active Substance: ONDANSETRON
     Indication: PROPHYLAXIS OF NAUSEA AND VOMITING
     Dosage: 24 MG, 3X/DAY
     Route: 042
     Dates: start: 20180404, end: 20180406
  7. PREDNISONE. [Suspect]
     Active Substance: PREDNISONE
     Indication: DIFFUSE LARGE B-CELL LYMPHOMA
     Dosage: DAYS 1?5
     Route: 048
     Dates: start: 20180404, end: 20180408
  8. ZOLPIDEM [Concomitant]
     Active Substance: ZOLPIDEM\ZOLPIDEM TARTRATE
     Indication: PROPHYLAXIS
     Dosage: 10 MG, 1X/DAY
     Route: 048
     Dates: start: 20180323
  9. ACTOCORTIN [Concomitant]
     Indication: ERYTHEMA
     Dosage: UNK (ONCE)
     Route: 042
     Dates: start: 20180404, end: 20180404
  10. RITUXIMAB. [Suspect]
     Active Substance: RITUXIMAB
     Indication: DIFFUSE LARGE B-CELL LYMPHOMA
     Route: 042
     Dates: start: 20180404, end: 20180404
  11. DOXORUBICIN HYDROCHLORIDE. [Suspect]
     Active Substance: DOXORUBICIN HYDROCHLORIDE
     Indication: DIFFUSE LARGE B-CELL LYMPHOMA
     Dosage: 50 MG/M2, DAY 1
     Route: 042
     Dates: start: 20180404, end: 20180404

REACTIONS (2)
  - Intestinal obstruction [Unknown]
  - Respiratory failure [Not Recovered/Not Resolved]

NARRATIVE: CASE EVENT DATE: 20180410
